FAERS Safety Report 8424074-6 (Version None)
Quarter: 2012Q2

REPORT INFORMATION
  Report Type: 
  Country: None (occurrence: None)
  Receive Date: 20120608
  Receipt Date: 20110414
  Transmission Date: 20120825
  Serious: No
  Sender: FDA-Public Use
  Company Number: US-ASTRAZENECA-2011SE07355

PATIENT
  Age: 80 Year
  Sex: Female

DRUGS (4)
  1. CO-Q 10 [Concomitant]
  2. CRESTOR [Suspect]
     Indication: BLOOD CHOLESTEROL INCREASED
     Route: 048
     Dates: start: 20110301, end: 20110425
  3. ALBUTEROL [Concomitant]
  4. PULMICORT [Suspect]
     Route: 055

REACTIONS (8)
  - THROAT IRRITATION [None]
  - MALAISE [None]
  - GENERAL PHYSICAL HEALTH DETERIORATION [None]
  - POOR QUALITY SLEEP [None]
  - DRY THROAT [None]
  - DYSPHONIA [None]
  - DISABILITY [None]
  - MUSCLE SPASMS [None]
